FAERS Safety Report 7736561-4 (Version None)
Quarter: 2011Q3

REPORT INFORMATION
  Report Type: 
  Country: None (occurrence: None)
  Receive Date: 20110902
  Receipt Date: 20110822
  Transmission Date: 20111222
  Serious: Yes (Hospitalization, Other)
  Sender: FDA-Public Use
  Company Number: 2011P1007376

PATIENT
  Age: 62 Year
  Sex: Female
  Weight: 74.3899 kg

DRUGS (18)
  1. PREMARIN [Concomitant]
  2. FENTANYL [Suspect]
     Indication: BACK PAIN
     Dosage: ;Q3D;TDER
     Route: 062
     Dates: start: 20110511, end: 20110601
  3. FENTANYL [Suspect]
     Indication: DEVICE LEAKAGE
     Dosage: ;Q3D;TDER
     Route: 062
     Dates: start: 20110511, end: 20110601
  4. FENTANYL [Suspect]
     Indication: FIBROMYALGIA
     Dosage: ;Q3D;TDER
     Route: 062
     Dates: start: 20110511, end: 20110601
  5. FENTANYL [Suspect]
     Indication: BACK PAIN
     Dosage: ;Q3D;TDER
     Route: 062
     Dates: start: 20110511, end: 20110601
  6. FENTANYL [Suspect]
     Indication: DEVICE LEAKAGE
     Dosage: ;Q3D;TDER
     Route: 062
     Dates: start: 20110511, end: 20110601
  7. FENTANYL [Suspect]
     Indication: FIBROMYALGIA
     Dosage: ;Q3D;TDER
     Route: 062
     Dates: start: 20110511, end: 20110601
  8. SYNTHROID [Concomitant]
  9. MEDICATION [Concomitant]
  10. FENTANYL [Suspect]
     Indication: BACK PAIN
     Dosage: ;PARN 36,000 MCG;
     Dates: end: 20110519
  11. FENTANYL [Suspect]
     Indication: FIBROMYALGIA
     Dosage: ;PARN 36,000 MCG;
     Dates: end: 20110519
  12. FENTANYL [Suspect]
     Indication: BACK PAIN
     Dosage: ;PARN 36,000 MCG;
     Dates: start: 20110601
  13. FENTANYL [Suspect]
     Indication: FIBROMYALGIA
     Dosage: ;PARN 36,000 MCG;
     Dates: start: 20110601
  14. FENTANYL [Suspect]
     Indication: BACK PAIN
     Dosage: ;PARN 36,000 MCG;
     Dates: start: 20110519, end: 20110519
  15. FENTANYL [Suspect]
     Indication: FIBROMYALGIA
     Dosage: ;PARN 36,000 MCG;
     Dates: start: 20110519, end: 20110519
  16. LOVAZA [Suspect]
     Indication: BLOOD CHOLESTEROL INCREASED
     Dosage: 2 TABLETS;QD;
     Dates: start: 20110707, end: 20110712
  17. UNSPECIFIED HIGH BLOC PRESSURE [Concomitant]
  18. NOROCAINE DRIP (NO PREF. NAME) [Suspect]
     Indication: BACK PAIN
     Dosage: ;PARN

REACTIONS (10)
  - MUSCULOSKELETAL STIFFNESS [None]
  - ERYTHEMA [None]
  - RENAL DISORDER [None]
  - URINE ANALYSIS ABNORMAL [None]
  - ACCIDENTAL OVERDOSE [None]
  - FEELING HOT [None]
  - WEIGHT INCREASED [None]
  - SYNCOPE [None]
  - RHABDOMYOLYSIS [None]
  - ALOPECIA [None]
